FAERS Safety Report 4371777-9 (Version None)
Quarter: 2004Q2

REPORT INFORMATION
  Report Type: 
  Country: None (occurrence: None)
  Receive Date: 20040601
  Receipt Date: 20040519
  Transmission Date: 20050107
  Serious: Yes (Death)
  Sender: FDA-Public Use
  Company Number: MK200405-0254-1

PATIENT
  Age: 17 Year
  Sex: Female

DRUGS (3)
  1. OPTIRAY 320 [Suspect]
     Indication: COMPUTERISED TOMOGRAM HEAD
     Dosage: 1CC/KG, IV, ONCE
     Route: 042
     Dates: start: 20040415, end: 20040415
  2. VIOXX [Concomitant]
  3. DIURETICS [Concomitant]

REACTIONS (1)
  - RENAL FAILURE [None]
